FAERS Safety Report 4666835-5 (Version None)
Quarter: 2005Q2

REPORT INFORMATION
  Report Type: 
  Country: None (occurrence: None)
  Receive Date: 20050518
  Receipt Date: 20050226
  Transmission Date: 20051028
  Serious: Yes (Other)
  Sender: FDA-Public Use
  Company Number: 2005025835

PATIENT
  Age: 26 Year
  Sex: Female
  Weight: 49.8957 kg

DRUGS (2)
  1. DEPO-PROVERA [Suspect]
     Indication: CONTRACEPTION
     Dosage: 150 MG (150 MG, INTERVAL: EVERY 12 WKS 1ST INJ), IM, 150 MG ( 150 MG,MOST RECENT INJ ) IM
     Route: 030
     Dates: start: 20010501, end: 20010501
  2. DEPO-PROVERA [Suspect]
     Indication: CONTRACEPTION
     Dosage: 150 MG (150 MG, INTERVAL: EVERY 12 WKS 1ST INJ), IM, 150 MG ( 150 MG,MOST RECENT INJ ) IM
     Route: 030
     Dates: start: 20050101, end: 20050101

REACTIONS (2)
  - OSTEOPENIA [None]
  - OSTEOPOROSIS [None]
